FAERS Safety Report 5123140-0 (Version None)
Quarter: 2006Q4

REPORT INFORMATION
  Report Type: 
  Country: None (occurrence: None)
  Receive Date: 20061009
  Receipt Date: 20060928
  Transmission Date: 20070319
  Serious: Yes (Other)
  Sender: FDA-Public Use
  Company Number: US-JNJFOC-20061000087

PATIENT
  Age: 45 Year
  Sex: Male

DRUGS (9)
  1. ULTRAM [Suspect]
     Indication: DRUG USE FOR UNKNOWN INDICATION
  2. CARISOPRODOL [Suspect]
     Indication: MIGRAINE
     Route: 048
  3. ZOLOFT [Concomitant]
  4. CLONAZEPAM [Concomitant]
  5. IMITREX [Concomitant]
  6. ALEVE [Concomitant]
  7. ZETIA [Concomitant]
  8. GARLIC [Concomitant]
  9. OSTEO BIFLEX [Concomitant]

REACTIONS (2)
  - PENILE PAIN [None]
  - PEYRONIE'S DISEASE [None]
